FAERS Safety Report 20839265 (Version 1)
Quarter: 2022Q2

REPORT INFORMATION
  Report Type: Spontaneous
  Country: US (occurrence: US)
  Receive Date: 20220517
  Receipt Date: 20220517
  Transmission Date: 20220720
  Serious: No
  Sender: FDA-Public Use
  Company Number: US-BRISTOL-MYERS SQUIBB COMPANY-2022-039159

PATIENT
  Age: 68 Year
  Sex: Female

DRUGS (1)
  1. SPRYCEL [Suspect]
     Active Substance: DASATINIB
     Indication: Product used for unknown indication
     Dosage: DOSE : UNK;     FREQ : 1
     Route: 048

REACTIONS (3)
  - Diarrhoea [Unknown]
  - Rash [Unknown]
  - Blood urine present [Unknown]

NARRATIVE: CASE EVENT DATE: 20220429
